FAERS Safety Report 5358469-4 (Version None)
Quarter: 2007Q2

REPORT INFORMATION
  Report Type: 
  Country: None (occurrence: None)
  Receive Date: 20070615
  Receipt Date: 20070612
  Transmission Date: 20071010
  Serious: Yes (Life-Threatening, Other)
  Sender: FDA-Public Use
  Company Number: CHWYE451231JAN07

PATIENT
  Age: 37 Year
  Sex: Female
  Weight: 64 kg

DRUGS (2)
  1. EFFEXOR [Suspect]
     Route: 048
  2. LEXOTANIL [Suspect]
     Route: 048

REACTIONS (4)
  - DRUG EXPOSURE DURING PREGNANCY [None]
  - OBSTETRICAL PULMONARY EMBOLISM [None]
  - PRE-ECLAMPSIA [None]
  - UTERINE HAEMORRHAGE [None]
